FAERS Safety Report 16409739 (Version 1)
Quarter: 2019Q2

REPORT INFORMATION
  Report Type: Spontaneous
  Country: DE (occurrence: DE)
  Receive Date: 20190610
  Receipt Date: 20190610
  Transmission Date: 20190711
  Serious: Yes (Hospitalization)
  Sender: FDA-Public Use
  Company Number: DE-JNJFOC-20190603900

PATIENT
  Age: 55 Year
  Sex: Female

DRUGS (2)
  1. STELARA [Suspect]
     Active Substance: USTEKINUMAB
     Indication: CROHN^S DISEASE
     Route: 058
     Dates: start: 20190418
  2. SALOFALK GR [Concomitant]
     Route: 065

REACTIONS (3)
  - Arthralgia [Unknown]
  - Retinal artery occlusion [Unknown]
  - Joint swelling [Unknown]

NARRATIVE: CASE EVENT DATE: 201905
